FAERS Safety Report 17363075 (Version 1)
Quarter: 2020Q1

REPORT INFORMATION
  Report Type: Spontaneous
  Country: FR (occurrence: FR)
  Receive Date: 20200203
  Receipt Date: 20200203
  Transmission Date: 20200409
  Serious: Yes (Hospitalization, Other)
  Sender: FDA-Public Use
  Company Number: FR-MYLANLABS-2020M1011597

PATIENT
  Age: 51 Year
  Sex: Male
  Weight: 67 kg

DRUGS (1)
  1. PAROXETINE. [Suspect]
     Active Substance: PAROXETINE
     Indication: PRODUCT USED FOR UNKNOWN INDICATION
     Dosage: 560 MILLIGRAM, TOTAL
     Route: 048
     Dates: start: 20190315, end: 20190315

REACTIONS (2)
  - Poisoning deliberate [Unknown]
  - Serotonin syndrome [Recovered/Resolved]

NARRATIVE: CASE EVENT DATE: 20190315
